APPROVED DRUG PRODUCT: SYPRINE
Active Ingredient: TRIENTINE HYDROCHLORIDE
Strength: 250MG
Dosage Form/Route: CAPSULE;ORAL
Application: N019194 | Product #001 | TE Code: AB
Applicant: BAUSCH HEALTH AMERICAS INC
Approved: Nov 8, 1985 | RLD: Yes | RS: Yes | Type: RX